FAERS Safety Report 14931519 (Version 1)
Quarter: 2018Q2

REPORT INFORMATION
  Report Type: Spontaneous
  Country: US (occurrence: US)
  Receive Date: 20180524
  Receipt Date: 20180524
  Transmission Date: 20180711
  Serious: No
  Sender: FDA-Public Use
  Company Number: US-JNJFOC-20180510499

PATIENT
  Age: 49 Year
  Sex: Female
  Weight: 90.72 kg

DRUGS (11)
  1. POTASSIUM [Concomitant]
     Active Substance: POTASSIUM
     Indication: BLOOD POTASSIUM DECREASED
     Route: 065
  2. ZINC. [Concomitant]
     Active Substance: ZINC
     Indication: ROUTINE HEALTH MAINTENANCE
     Route: 065
  3. SELSUN BLUE [Concomitant]
     Active Substance: SELENIUM SULFIDE
     Indication: RASH
     Route: 065
  4. WOMENS ROGAINE UNSCENTED [Suspect]
     Active Substance: MINOXIDIL
     Route: 061
  5. MAGNESIUM [Concomitant]
     Active Substance: MAGNESIUM
     Indication: BLOOD MAGNESIUM DECREASED
     Route: 065
  6. WOMENS ROGAINE UNSCENTED [Suspect]
     Active Substance: MINOXIDIL
     Indication: ALOPECIA
     Dosage: 1/2 CAPFUL
     Route: 061
     Dates: end: 20180504
  7. MAGNESIUM [Concomitant]
     Active Substance: MAGNESIUM
     Indication: BLOOD MAGNESIUM DECREASED
     Route: 042
  8. ESTROGEN W/TESTOSTERONE [Concomitant]
     Indication: BLOOD OESTROGEN DECREASED
     Route: 065
  9. HEAD AND SHOULDERS [Concomitant]
     Active Substance: PYRITHIONE ZINC
     Indication: RASH
     Route: 065
  10. VITAMIN C [Concomitant]
     Active Substance: ASCORBIC ACID
     Indication: ROUTINE HEALTH MAINTENANCE
     Route: 065
  11. DOXEPIN [Concomitant]
     Active Substance: DOXEPIN
     Indication: RASH
     Route: 065

REACTIONS (2)
  - Product use in unapproved indication [Unknown]
  - Contraindicated product administered [Unknown]
